FAERS Safety Report 10482888 (Version 3)
Quarter: 2014Q4

REPORT INFORMATION
  Report Type: Report from Study
  Country: US (occurrence: CH)
  Receive Date: 20140929
  Receipt Date: 20141105
  Transmission Date: 20150528
  Serious: Yes (Other)
  Sender: FDA-Public Use
  Company Number: PHHY2014CH075167

PATIENT
  Sex: Female

DRUGS (2)
  1. LDK378 [Suspect]
     Active Substance: CERITINIB
     Indication: PRODUCT USED FOR UNKNOWN INDICATION
     Route: 065
     Dates: start: 20140319
  2. LDK378 [Suspect]
     Active Substance: CERITINIB
     Route: 065
     Dates: end: 20141024

REACTIONS (4)
  - Metastases to central nervous system [Unknown]
  - Nausea [Not Recovered/Not Resolved]
  - Disease progression [Unknown]
  - Dysgeusia [Not Recovered/Not Resolved]

NARRATIVE: CASE EVENT DATE: 20140319
